FAERS Safety Report 10810331 (Version 2)
Quarter: 2015Q1

REPORT INFORMATION
  Report Type: Spontaneous
  Country: US (occurrence: None)
  Receive Date: 20150212
  Receipt Date: 20150302
  Transmission Date: 20150721
  Serious: Yes (Other)
  Sender: FDA-Public Use
  Company Number: US-H14001-15-00229

PATIENT
  Age: 83 Year
  Sex: Male
  Weight: 71.9 kg

DRUGS (3)
  1. ROCURONIUM (ROCURONIUM) (UNKNOWN) (ROCURONIUM) [Concomitant]
  2. ONDANSETRON. [Suspect]
     Active Substance: ONDANSETRON
     Indication: PROCEDURAL NAUSEA
     Dosage: NOT OTHERWISE SPECIFIED
     Route: 042
     Dates: start: 20150129, end: 20150129
  3. PROPOFOL (PROPOFOL) (UNKNOWN) (PROPOFOL) [Concomitant]

REACTIONS (5)
  - Paralysis [None]
  - Aphasia [None]
  - Dyspnoea [None]
  - Neuromuscular blockade [None]
  - Unresponsive to stimuli [None]

NARRATIVE: CASE EVENT DATE: 20150129
